FAERS Safety Report 18082375 (Version 2)
Quarter: 2020Q3

REPORT INFORMATION
  Report Type: Report from Study
  Country: FR (occurrence: FR)
  Receive Date: 20200728
  Receipt Date: 20200807
  Transmission Date: 20201103
  Serious: Yes (Hospitalization)
  Sender: FDA-Public Use
  Company Number: FR-EISAI MEDICAL RESEARCH-EC-2020-076255

PATIENT
  Age: 71 Year
  Sex: Male
  Weight: 70 kg

DRUGS (13)
  1. METFORMIN [Concomitant]
     Active Substance: METFORMIN HYDROCHLORIDE
     Dates: start: 202002
  2. PEMBROLIZUMAB. [Suspect]
     Active Substance: PEMBROLIZUMAB
     Indication: HEPATOCELLULAR CARCINOMA
     Route: 041
     Dates: start: 20200302, end: 20200302
  3. LOGIMAX [Concomitant]
     Active Substance: FELODIPINE\METOPROLOL SUCCINATE
     Dates: start: 202002
  4. KARDEGIC [Concomitant]
     Active Substance: ASPIRIN DL-LYSINE
     Dates: start: 202002
  5. SODIUM BICARBONATE. [Concomitant]
     Active Substance: SODIUM BICARBONATE
     Dates: start: 20190101
  6. MAGNE B6 [Concomitant]
     Active Substance: MAGNESIUM\PYRIDOXINE
     Dates: start: 20200219
  7. PHOSPHONEUROS [Concomitant]
     Active Substance: CALCIUM PHOSPHATE, DIBASIC, ANHYDROUS\MAGNESIUM GLYCEROPHOSPHATE\PHOSPHORIC ACID\SODIUM PHOSPHATE, DIBASIC
     Dates: start: 20200316, end: 20200326
  8. PEMBROLIZUMAB. [Suspect]
     Active Substance: PEMBROLIZUMAB
     Route: 041
     Dates: start: 20200326, end: 20200326
  9. ESOMEPRAZOLE. [Concomitant]
     Active Substance: ESOMEPRAZOLE MAGNESIUM
     Dates: start: 202002
  10. DOLIPRANE [Concomitant]
     Active Substance: ACETAMINOPHEN
     Dates: start: 20200305
  11. PEMBROLIZUMAB. [Suspect]
     Active Substance: PEMBROLIZUMAB
     Route: 041
     Dates: start: 20200416
  12. LENVATINIB [Suspect]
     Active Substance: LENVATINIB
     Indication: HEPATOCELLULAR CARCINOMA
     Route: 048
     Dates: start: 20200302
  13. PROPRANOLOL [Concomitant]
     Active Substance: PROPRANOLOL HYDROCHLORIDE
     Dates: start: 20200224

REACTIONS (1)
  - Oesophagitis [Not Recovered/Not Resolved]

NARRATIVE: CASE EVENT DATE: 20200330
